FAERS Safety Report 10358411 (Version 3)
Quarter: 2015Q2

REPORT INFORMATION
  Report Type: Report from Study
  Country: PT (occurrence: PT)
  Receive Date: 20140801
  Receipt Date: 20150528
  Transmission Date: 20150821
  Serious: Yes (Hospitalization)
  Sender: FDA-Public Use
  Company Number: PT-ROCHE-1439275

PATIENT
  Age: 72 Year
  Sex: Female

DRUGS (43)
  1. TRASTUZUMAB [Suspect]
     Active Substance: TRASTUZUMAB
     Dosage: CYCLE 13
     Route: 042
     Dates: start: 20140627
  2. FLUCONAZOLE. [Concomitant]
     Active Substance: FLUCONAZOLE
     Dosage: 2MG/ML
     Route: 065
     Dates: start: 20131003, end: 20131021
  3. CIPROFLOXACINA [Concomitant]
     Active Substance: CIPROFLOXACIN
     Route: 065
     Dates: start: 20131220, end: 20131227
  4. METOCLOPRAMIDE. [Concomitant]
     Active Substance: METOCLOPRAMIDE
     Dosage: 10MG/2ML
     Route: 065
     Dates: start: 20131003, end: 20131007
  5. DOCETAXEL. [Suspect]
     Active Substance: DOCETAXEL
     Dosage: CYCLE 11
     Route: 042
     Dates: start: 20140516
  6. FOSAVANCE [Concomitant]
     Active Substance: ALENDRONATE SODIUM\CHOLECALCIFEROL
     Route: 065
     Dates: start: 2010
  7. MYCOSTATIN [Concomitant]
     Active Substance: NYSTATIN
     Dosage: 100000 U.I./ML
     Route: 065
     Dates: start: 20131014
  8. DOCETAXEL. [Suspect]
     Active Substance: DOCETAXEL
     Dosage: CYCLE 13
     Route: 042
     Dates: start: 20140627
  9. FLUIMUCIL [Concomitant]
     Active Substance: ACETYLCYSTEINE
     Route: 065
     Dates: start: 20131213, end: 20131218
  10. BROMAZEPAM [Concomitant]
     Active Substance: BROMAZEPAM
     Route: 065
     Dates: start: 20130103
  11. GLUCOSE/SODIUM CHLORIDE [Concomitant]
     Active Substance: DEXTROSE
     Dosage: 55MG/ML+9MG/ML
     Route: 065
     Dates: start: 20131003, end: 20131007
  12. PERTUZUMAB [Suspect]
     Active Substance: PERTUZUMAB
     Dosage: MAINTENANCE DOSE. DATE OF LAST DOSE PRIOR TO SAE 17/JUL/2014
     Route: 042
     Dates: start: 20131003
  13. DOCETAXEL. [Suspect]
     Active Substance: DOCETAXEL
     Indication: HER-2 POSITIVE BREAST CANCER
     Dosage: DATE OF LAST DOSE PRIOR TO SAE: 17/JUL/2014
     Route: 042
     Dates: start: 20130912
  14. DOCETAXEL. [Suspect]
     Active Substance: DOCETAXEL
     Dosage: CYCLE 12
     Route: 042
     Dates: start: 20140606
  15. AMOXICILLIN/CLAVULANIC ACID [Concomitant]
     Active Substance: AMOXICILLIN\CLAVULANIC ACID
     Dosage: 2000+200/MG
     Route: 065
     Dates: start: 20131227, end: 20140106
  16. LOPERAMIDE [Concomitant]
     Active Substance: LOPERAMIDE
     Route: 065
     Dates: start: 20140517, end: 20140519
  17. PERTUZUMAB [Suspect]
     Active Substance: PERTUZUMAB
     Indication: HER-2 POSITIVE BREAST CANCER
     Dosage: LOADING DOSE
     Route: 042
     Dates: start: 20130912, end: 20130912
  18. AZITROMICINA [Concomitant]
     Active Substance: AZITHROMYCIN DIHYDRATE
     Route: 065
     Dates: start: 20131213, end: 20131215
  19. GLUCOSE/SODIUM CHLORIDE [Concomitant]
     Active Substance: DEXTROSE
     Dosage: 55 MG/ML + 9 MG/ML
     Route: 065
     Dates: start: 20131003, end: 20131007
  20. TRASTUZUMAB [Suspect]
     Active Substance: TRASTUZUMAB
     Dosage: DATE OF LAST DOSE PRIOR TO SAE: 17/JUL/2014
     Route: 042
     Dates: start: 20131003
  21. TRASTUZUMAB [Suspect]
     Active Substance: TRASTUZUMAB
     Dosage: CYCLE 11
     Route: 042
     Dates: start: 20140516
  22. TRASTUZUMAB [Suspect]
     Active Substance: TRASTUZUMAB
     Dosage: LAST DOSE PRIOR TO SAE 17/JUL/2014?CYCLE 14
     Route: 042
     Dates: start: 20140717
  23. MYCOSTATIN [Concomitant]
     Active Substance: NYSTATIN
     Dosage: 100000/U.I/ML
     Route: 065
     Dates: start: 20131105, end: 20131111
  24. CIPROFLOXACINA [Concomitant]
     Active Substance: CIPROFLOXACIN
     Route: 065
     Dates: start: 20140628, end: 20140704
  25. TRAMADOL [Concomitant]
     Active Substance: TRAMADOL
     Dosage: 100MG/2ML
     Route: 065
     Dates: start: 20131003, end: 20131007
  26. ENOXAPARIN [Concomitant]
     Active Substance: ENOXAPARIN
     Dosage: 40MG/0.4ML
     Route: 065
     Dates: start: 20131003, end: 20131007
  27. NYSTATIN. [Concomitant]
     Active Substance: NYSTATIN
     Dosage: 100000 UI/ML
     Route: 065
     Dates: start: 20131105, end: 20131111
  28. TRASTUZUMAB [Suspect]
     Active Substance: TRASTUZUMAB
     Indication: HER-2 POSITIVE BREAST CANCER
     Dosage: LOADING DOSE
     Route: 042
     Dates: start: 20130912, end: 20130912
  29. TRASTUZUMAB [Suspect]
     Active Substance: TRASTUZUMAB
     Dosage: CYCLE 12
     Route: 042
     Dates: start: 20140606
  30. PANTOPRAZOLE SODIUM. [Concomitant]
     Active Substance: PANTOPRAZOLE SODIUM
     Route: 065
     Dates: start: 20131105
  31. ESOMEPRAZOL [Concomitant]
     Active Substance: ESOMEPRAZOLE
     Route: 065
     Dates: start: 20131004, end: 20131104
  32. LOPERAMIDE [Concomitant]
     Active Substance: LOPERAMIDE
     Route: 065
     Dates: start: 20140405, end: 20140407
  33. LOPERAMIDE [Concomitant]
     Active Substance: LOPERAMIDE
     Route: 065
     Dates: start: 20140425, end: 20140428
  34. NITROFURANTOINA [Concomitant]
     Route: 065
     Dates: start: 20140620, end: 20140625
  35. AMOXICILLIN. [Concomitant]
     Active Substance: AMOXICILLIN
     Route: 065
     Dates: start: 20140523, end: 20140523
  36. DOCETAXEL. [Suspect]
     Active Substance: DOCETAXEL
     Dosage: CYCLE 14?LAST DOSE PRIOR TO SAE 17/JUL/2014
     Route: 042
     Dates: start: 20140717
  37. AMOXICILLIN. [Concomitant]
     Active Substance: AMOXICILLIN
     Dosage: SOLE DOSE
     Route: 065
     Dates: start: 20140523, end: 20140523
  38. FLUCONAZOLE. [Concomitant]
     Active Substance: FLUCONAZOLE
     Dosage: 2/MG/ML
     Route: 065
     Dates: start: 20131105, end: 20131122
  39. TOLVON [Concomitant]
     Active Substance: MIANSERIN
     Route: 065
     Dates: start: 2005, end: 20140102
  40. MIRTAZAPINA [Concomitant]
     Active Substance: MIRTAZAPINE
     Route: 065
     Dates: start: 20131128, end: 20131130
  41. MEXAZOLAM [Concomitant]
     Active Substance: MEXAZOLAM
     Route: 065
     Dates: start: 20131128, end: 20131130
  42. ZOLPIDEM [Concomitant]
     Active Substance: ZOLPIDEM\ZOLPIDEM TARTRATE
     Route: 065
     Dates: start: 20131128, end: 20131130
  43. PARACETAMOL [Concomitant]
     Active Substance: ACETAMINOPHEN
     Dosage: 10MG/ML
     Route: 065
     Dates: start: 20131003, end: 20131007

REACTIONS (1)
  - Cellulitis [Recovered/Resolved]

NARRATIVE: CASE EVENT DATE: 20140719
